FAERS Safety Report 18084791 (Version 2)
Quarter: 2020Q3

REPORT INFORMATION
  Report Type: Spontaneous
  Country: JP (occurrence: JP)
  Receive Date: 20200729
  Receipt Date: 20200818
  Transmission Date: 20201103
  Serious: Yes (Hospitalization)
  Sender: FDA-Public Use
  Company Number: JP-ELI_LILLY_AND_COMPANY-JP202007008462

PATIENT
  Age: 35 Year
  Sex: Female

DRUGS (9)
  1. CORTRIL [Concomitant]
     Active Substance: HYDROCORTISONE
  2. DUPHASTON [Concomitant]
     Active Substance: DYDROGESTERONE
  3. ESTRIOL [Concomitant]
     Active Substance: ESTRIOL
  4. HUMATROPE [Suspect]
     Active Substance: SOMATROPIN
     Indication: PRODUCT USED FOR UNKNOWN INDICATION
     Dosage: UNK
     Route: 058
  5. THYRADIN [Concomitant]
     Active Substance: LEVOTHYROXINE
     Dosage: UNK
  6. DESMOPRESSIN [Concomitant]
     Active Substance: DESMOPRESSIN
  7. CLOBAZAM. [Concomitant]
     Active Substance: CLOBAZAM
     Dosage: UNK
  8. MEVALOTIN [Concomitant]
     Active Substance: PRAVASTATIN SODIUM
     Dosage: UNK
  9. ESTRANA [Concomitant]
     Active Substance: ESTRADIOL

REACTIONS (1)
  - Epilepsy [Not Recovered/Not Resolved]

NARRATIVE: CASE EVENT DATE: 201010
